FAERS Safety Report 13293430 (Version 1)
Quarter: 2017Q1

REPORT INFORMATION
  Report Type: Spontaneous
  Country: IT (occurrence: IT)
  Receive Date: 20170303
  Receipt Date: 20170303
  Transmission Date: 20170428
  Serious: Yes (Hospitalization)
  Sender: FDA-Public Use
  Company Number: IT-MYLANLABS-2017M1013598

PATIENT

DRUGS (2)
  1. EZEQUA [Suspect]
     Active Substance: DULOXETINE HYDROCHLORIDE
     Indication: PRODUCT USED FOR UNKNOWN INDICATION
     Dosage: 1680 MG, TOTAL
     Route: 048
  2. LORAZEPAM. [Suspect]
     Active Substance: LORAZEPAM
     Indication: PRODUCT USED FOR UNKNOWN INDICATION
     Dosage: 22.5 MG, TOTAL
     Route: 048
     Dates: start: 20170212, end: 20170212

REACTIONS (5)
  - Suicidal ideation [Unknown]
  - Overdose [Unknown]
  - Drug abuse [Recovering/Resolving]
  - Aphasia [Recovering/Resolving]
  - Intentional overdose [None]

NARRATIVE: CASE EVENT DATE: 20170212
